FAERS Safety Report 5597698-1 (Version None)
Quarter: 2008Q1

REPORT INFORMATION
  Report Type: 
  Country: None (occurrence: None)
  Receive Date: 20080121
  Receipt Date: 20080109
  Transmission Date: 20080703
  Serious: Yes (Other)
  Sender: FDA-Public Use
  Company Number: US-ELI_LILLY_AND_COMPANY-US200801001700

PATIENT
  Sex: Female

DRUGS (4)
  1. HUMALOG [Suspect]
  2. HUMALOG [Suspect]
  3. GLIPIZIDE [Concomitant]
     Dosage: UNK, 2/D
  4. LANTUS [Concomitant]

REACTIONS (4)
  - ARTHRITIS [None]
  - BLOOD GLUCOSE INCREASED [None]
  - DRUG INEFFECTIVE [None]
  - JOINT ARTHROPLASTY [None]
